FAERS Safety Report 5650732-2 (Version None)
Quarter: 2008Q1

REPORT INFORMATION
  Report Type: 
  Country: None (occurrence: None)
  Receive Date: 20080303
  Receipt Date: 20080219
  Transmission Date: 20080703
  Serious: Yes (Hospitalization)
  Sender: FDA-Public Use
  Company Number: 100#08#2008-01037

PATIENT
  Age: 77 Year
  Sex: Female

DRUGS (5)
  1. CITALOPRAM HYDROBROMIDE [Suspect]
     Indication: DEPRESSIVE DELUSION
     Dosage: 20 MG
     Dates: start: 20060701
  2. RISPERIDONE [Suspect]
     Indication: DEPRESSIVE DELUSION
     Dosage: 2 MG
     Dates: start: 20060701
  3. SULFAMETHOXAZOLE AND TRIMETHOPRIM [Suspect]
     Indication: CYSTITIS
     Dosage: 3 X 960 MG
  4. RAMIPRIL [Concomitant]
  5. NIFEDIPINE [Concomitant]

REACTIONS (3)
  - CYSTITIS [None]
  - TORSADE DE POINTES [None]
  - VENTRICULAR HYPERTROPHY [None]
